FAERS Safety Report 5675186-1 (Version None)
Quarter: 2008Q1

REPORT INFORMATION
  Report Type: 
  Country: None (occurrence: None)
  Receive Date: 20080320
  Receipt Date: 20080310
  Transmission Date: 20080703
  Serious: Yes (Other)
  Sender: FDA-Public Use
  Company Number: AU-SANOFI-SYNTHELABO-A01200802751

PATIENT
  Age: 19 Year
  Sex: Female

DRUGS (3)
  1. CANNABIS [Suspect]
     Dosage: UNK
     Route: 065
  2. ALCOHOL [Suspect]
     Dosage: UNK
     Route: 048
  3. STILNOX [Suspect]
     Indication: DRUG USE FOR UNKNOWN INDICATION
     Dosage: UNK
     Route: 048

REACTIONS (1)
  - HOMICIDE [None]
